FAERS Safety Report 15659125 (Version 1)
Quarter: 2018Q4

REPORT INFORMATION
  Report Type: Spontaneous
  Country: CA (occurrence: CA)
  Receive Date: 20181127
  Receipt Date: 20181127
  Transmission Date: 20190205
  Serious: Yes (Hospitalization)
  Sender: FDA-Public Use
  Company Number: CA-SA-2018SA321288

PATIENT
  Age: 67 Year
  Sex: Male

DRUGS (1)
  1. BCG FOR IMMUNOTHERAPY [Suspect]
     Active Substance: BACILLUS CALMETTE-GUERIN ANTIGEN, UNSPECIFIED SUBSTRAIN
     Indication: BLADDER CANCER
     Dosage: UNK

REACTIONS (5)
  - Weight decreased [Unknown]
  - Night sweats [Unknown]
  - Aortic aneurysm [Unknown]
  - Infective aneurysm [Unknown]
  - Granulomatosis with polyangiitis [Unknown]
